FAERS Safety Report 13496232 (Version 2)
Quarter: 2017Q4

REPORT INFORMATION
  Report Type: Spontaneous
  Country: US (occurrence: US)
  Receive Date: 20170428
  Receipt Date: 20171129
  Transmission Date: 20180320
  Serious: No
  Sender: FDA-Public Use
  Company Number: US-LUNDBECK-DKLU2029496

PATIENT
  Age: 61 Year
  Sex: Male

DRUGS (5)
  1. NORTHERA [Suspect]
     Active Substance: DROXIDOPA
     Route: 048
  2. NORTHERA [Suspect]
     Active Substance: DROXIDOPA
     Route: 048
  3. NORTHERA [Suspect]
     Active Substance: DROXIDOPA
     Route: 048
  4. NORTHERA [Suspect]
     Active Substance: DROXIDOPA
     Indication: AUTONOMIC NEUROPATHY
     Dosage: SCHEDULE B, TITRATING
     Route: 048
     Dates: start: 20170401
  5. NORTHERA [Suspect]
     Active Substance: DROXIDOPA
     Route: 048
     Dates: end: 20170419

REACTIONS (11)
  - Road traffic accident [Recovered/Resolved]
  - Vomiting [Unknown]
  - Blood pressure diastolic decreased [Unknown]
  - Dyskinesia [Recovering/Resolving]
  - Drug ineffective [Unknown]
  - Disturbance in attention [Recovering/Resolving]
  - Contusion [Unknown]
  - Headache [Unknown]
  - Hypotension [Recovering/Resolving]
  - Intentional product use issue [Recovered/Resolved]
  - Fatigue [Recovering/Resolving]

NARRATIVE: CASE EVENT DATE: 20170404
